FAERS Safety Report 9263133 (Version 1)
Quarter: 2013Q2

REPORT INFORMATION
  Report Type: Spontaneous
  Country: AU (occurrence: AU)
  Receive Date: 20130430
  Receipt Date: 20130430
  Transmission Date: 20140414
  Serious: Yes (Other)
  Sender: FDA-Public Use
  Company Number: AU-BRISTOL-MYERS SQUIBB COMPANY-18837435

PATIENT
  Age: 69 Year
  Sex: Female

DRUGS (1)
  1. KARVEZIDE [Suspect]
     Dosage: KARVEZIDE 300/12.5
     Dates: start: 201302, end: 20130416

REACTIONS (4)
  - Pulmonary oedema [Unknown]
  - Local swelling [Unknown]
  - Spider vein [Unknown]
  - Cough [Unknown]
